FAERS Safety Report 10100393 (Version 1)
Quarter: 2014Q2

REPORT INFORMATION
  Report Type: Spontaneous
  Country: GB (occurrence: GB)
  Receive Date: 20140423
  Receipt Date: 20140423
  Transmission Date: 20141212
  Serious: Yes (Other)
  Sender: FDA-Public Use
  Company Number: GB-ACTAVIS-2014-07936

PATIENT
  Age: 76 Year
  Sex: Female
  Weight: 64 kg

DRUGS (2)
  1. CLOPIDOGREL (UNKNOWN) [Suspect]
     Indication: CEREBROVASCULAR ACCIDENT
     Dosage: 75 MG, DAILY
     Route: 065
     Dates: start: 201209, end: 201403
  2. THYROXINE [Concomitant]
     Indication: AUTOIMMUNE THYROIDITIS
     Dosage: 150 MG, DAILY
     Route: 065
     Dates: start: 1991

REACTIONS (1)
  - Epistaxis [Not Recovered/Not Resolved]
